FAERS Safety Report 15404925 (Version 3)
Quarter: 2018Q3

REPORT INFORMATION
  Report Type: Report from Study
  Country: None (occurrence: AU)
  Receive Date: 20180920
  Receipt Date: 20180927
  Transmission Date: 20181010
  Serious: Yes (Hospitalization)
  Sender: FDA-Public Use
  Company Number: AU-ABBVIE-18S-008-2485771-00

PATIENT
  Age: 78 Year
  Sex: Male

DRUGS (1)
  1. DUODOPA [Suspect]
     Active Substance: CARBIDOPA\LEVODOPA
     Indication: PARKINSON^S DISEASE
     Route: 050
     Dates: start: 20180716

REACTIONS (5)
  - Paranoia [Recovered/Resolved]
  - Abnormal behaviour [Recovered/Resolved]
  - Stoma site infection [Recovering/Resolving]
  - Fall [Recovered/Resolved]
  - Device connection issue [Unknown]

NARRATIVE: CASE EVENT DATE: 20180909
